FAERS Safety Report 14204028 (Version 1)
Quarter: 2017Q4

REPORT INFORMATION
  Report Type: Spontaneous
  Country: US (occurrence: US)
  Receive Date: 20171120
  Receipt Date: 20171120
  Transmission Date: 20180321
  Serious: No
  Sender: FDA-Public Use
  Company Number: US-BAYER-2017-224231

PATIENT
  Age: 57 Year
  Sex: Male
  Weight: 104 kg

DRUGS (2)
  1. ALEVE [Suspect]
     Active Substance: NAPROXEN SODIUM
     Indication: PAIN
     Dosage: UNK
     Route: 048
     Dates: start: 20170117, end: 20171117
  2. CORTISON [Concomitant]
     Active Substance: CORTISONE ACETATE

REACTIONS (2)
  - Extra dose administered [Unknown]
  - Therapeutic product ineffective [Unknown]

NARRATIVE: CASE EVENT DATE: 20171117
